FAERS Safety Report 8229848-2 (Version None)
Quarter: 2012Q1

REPORT INFORMATION
  Report Type: 
  Country: None (occurrence: None)
  Receive Date: 20120323
  Receipt Date: 20120309
  Transmission Date: 20120608
  Serious: Yes (Other)
  Sender: FDA-Public Use
  Company Number: US-PAR PHARMACEUTICAL, INC-2012SCPR004274

PATIENT

DRUGS (18)
  1. CIPROFLOXACIN [Suspect]
     Indication: LUNG INFECTION PSEUDOMONAL
     Dosage: 500 MG, TWICE DAILY
     Route: 048
  2. IPRATROPIUM BROMIDE [Concomitant]
     Indication: PRODUCT USED FOR UNKNOWN INDICATION
     Dosage: UNK, UNKNOWN
     Route: 045
  3. EZETIMIBE [Concomitant]
     Indication: PRODUCT USED FOR UNKNOWN INDICATION
     Dosage: 10 MG, DAILY
     Route: 065
  4. PREDNISONE TAB [Concomitant]
     Indication: IMMUNOSUPPRESSANT DRUG THERAPY
     Dosage: 5 MG, DAILY
     Route: 065
     Dates: start: 20080401
  5. AZATHIOPRINE [Concomitant]
     Indication: IMMUNOSUPPRESSANT DRUG THERAPY
     Dosage: 100 MG, DAILY
     Route: 065
     Dates: start: 20080401
  6. SULFAMETHOXAZOLE AND TRIMETHOPRIM [Concomitant]
     Indication: PRODUCT USED FOR UNKNOWN INDICATION
     Dosage: UNK, UNKNOWN
     Route: 065
  7. CEFEPIME [Concomitant]
     Indication: BRONCHITIS
  8. CEFTAZIDIME [Concomitant]
     Indication: LUNG INFECTION PSEUDOMONAL
     Dosage: UNK, UNKNOWN
     Route: 065
     Dates: start: 20110301
  9. CEFTAZIDIME [Concomitant]
     Indication: BRONCHITIS
  10. CIPROFLOXACIN [Suspect]
     Indication: BRONCHITIS
     Dosage: 500 MG, TWICE DAILY
     Route: 048
     Dates: start: 20100901
  11. CIPROFLOXACIN [Suspect]
     Dosage: UNK UNK, UNKNOWN
     Route: 048
     Dates: start: 20110301
  12. OMEPRAZOLE [Concomitant]
     Indication: PRODUCT USED FOR UNKNOWN INDICATION
     Dosage: UNK, UNKNOWN
     Route: 065
  13. CEFEPIME [Concomitant]
     Indication: LUNG INFECTION PSEUDOMONAL
     Dosage: 2 G, TWICE DAILY
     Route: 042
     Dates: start: 20110502, end: 20110526
  14. CIPROFLOXACIN [Suspect]
     Dosage: UNK UNK, UNKNOWN
     Route: 048
     Dates: start: 20110502, end: 20110526
  15. CYCLOSPORINE [Concomitant]
     Indication: IMMUNOSUPPRESSANT DRUG THERAPY
     Dosage: TARGET TROUGH LEVEL 100-150 NG/ML
     Route: 065
     Dates: start: 20080401
  16. ARFORMOTEROL TARTRATE [Concomitant]
     Indication: PRODUCT USED FOR UNKNOWN INDICATION
     Dosage: UNK, UNKNOWN
     Route: 055
  17. METOPROLOL SUCCINATE [Concomitant]
     Indication: PRODUCT USED FOR UNKNOWN INDICATION
     Dosage: UNK, UNKNOWN
     Route: 065
  18. ITRACONAZOLE [Concomitant]
     Indication: PRODUCT USED FOR UNKNOWN INDICATION
     Dosage: UNK, UNKNOWN
     Route: 065

REACTIONS (3)
  - HYPERKALAEMIA [None]
  - RHABDOMYOLYSIS [None]
  - RENAL FAILURE ACUTE [None]
